FAERS Safety Report 15470411 (Version 2)
Quarter: 2018Q4

REPORT INFORMATION
  Report Type: Spontaneous
  Country: MX (occurrence: MX)
  Receive Date: 20181005
  Receipt Date: 20181008
  Transmission Date: 20190205
  Serious: Yes (Death, Other)
  Sender: FDA-Public Use
  Company Number: MX-009507513-1810MEX001559

PATIENT
  Sex: Female

DRUGS (1)
  1. ZERBAXA [Suspect]
     Active Substance: CEFTOLOZANE SULFATE\TAZOBACTAM SODIUM
     Dosage: UNK
     Dates: start: 20180927

REACTIONS (1)
  - Organ failure [Fatal]

NARRATIVE: CASE EVENT DATE: 2018
